FAERS Safety Report 24322406 (Version 1)
Quarter: 2024Q3

REPORT INFORMATION
  Report Type: Spontaneous
  Country: US (occurrence: US)
  Receive Date: 20240916
  Receipt Date: 20240916
  Transmission Date: 20241017
  Serious: Yes (Life-Threatening)
  Sender: CHEPLAPHARM
  Company Number: US-ROCHE-10000072934

PATIENT
  Age: 68 Year
  Sex: Female

DRUGS (2)
  1. CAPECITABINE [Suspect]
     Active Substance: CAPECITABINE
     Indication: Endometrial cancer metastatic
  2. SORAFENIB [Suspect]
     Active Substance: SORAFENIB
     Indication: Endometrial cancer metastatic

REACTIONS (2)
  - Transient ischaemic attack [Unknown]
  - Off label use [Unknown]

NARRATIVE: CASE EVENT DATE: 20090716
